FAERS Safety Report 8389989-6 (Version None)
Quarter: 2012Q2

REPORT INFORMATION
  Report Type: 
  Country: None (occurrence: None)
  Receive Date: 20120529
  Receipt Date: 20120516
  Transmission Date: 20120825
  Serious: Yes (Hospitalization)
  Sender: FDA-Public Use
  Company Number: AT-VERTEX PHARMACEUTICALS INC.-000000000000000719

PATIENT
  Sex: Male

DRUGS (4)
  1. INCIVO [Suspect]
     Indication: HEPATITIS C
     Dosage: DOSAGE FORM: TABLET
     Dates: start: 20120220, end: 20120328
  2. PEGASYS [Concomitant]
     Indication: HEPATITIS C
     Dates: start: 20120220, end: 20120423
  3. COPEGUS [Concomitant]
     Indication: HEPATITIS C
     Dates: start: 20120220, end: 20120423
  4. UROSIN [Concomitant]
     Indication: HYPERURICAEMIA
     Dates: start: 20120328

REACTIONS (3)
  - LIVER DISORDER [None]
  - OESOPHAGEAL VARICES HAEMORRHAGE [None]
  - BRONCHOPNEUMONIA [None]
